FAERS Safety Report 23719607 (Version 1)
Quarter: 2024Q2

REPORT INFORMATION
  Report Type: Spontaneous
  Country: US (occurrence: None)
  Receive Date: 20240408
  Receipt Date: 20240408
  Transmission Date: 20240716
  Serious: Yes (Hospitalization)
  Sender: FDA-Public Use
  Company Number: None

PATIENT
  Age: 71 Year
  Sex: Female

DRUGS (1)
  1. TYMLOS [Suspect]
     Active Substance: ABALOPARATIDE
     Indication: Senile osteoporosis
     Dosage: OTHER STRENGTH : 3120/1.56 UG/ML;?FREQUENCY : DAILY;?
     Route: 058

REACTIONS (7)
  - Blood pressure decreased [None]
  - Dizziness [None]
  - Presyncope [None]
  - Therapy interrupted [None]
  - Chest discomfort [None]
  - Therapy cessation [None]
  - Red blood cell count decreased [None]
